FAERS Safety Report 15729401 (Version 2)
Quarter: 2018Q4

REPORT INFORMATION
  Report Type: Spontaneous
  Country: JP (occurrence: JP)
  Receive Date: 20181217
  Receipt Date: 20181229
  Transmission Date: 20190205
  Serious: No
  Sender: FDA-Public Use
  Company Number: JP-GLAXOSMITHKLINE-JP2018JPN176077

PATIENT
  Age: 70 Year
  Sex: Male

DRUGS (17)
  1. TAKECAB [Concomitant]
     Active Substance: VONOPRAZAN FUMURATE
     Dosage: UNK
  2. AVOLVE [Suspect]
     Active Substance: DUTASTERIDE
     Indication: BENIGN PROSTATIC HYPERPLASIA
     Dosage: 0.5 MG, QD
     Route: 048
     Dates: start: 201807
  3. SENNA [Concomitant]
     Active Substance: SENNA LEAF\SENNOSIDES\SENNOSIDES A AND B
     Dosage: UNK
  4. DEPAS (ETIZOLAM) [Concomitant]
     Dosage: UNK
  5. MAGNESIUM OXIDE. [Concomitant]
     Active Substance: MAGNESIUM OXIDE
     Dosage: UNK
  6. HARNAL [Concomitant]
     Active Substance: TAMSULOSIN HYDROCHLORIDE
     Dosage: UNK
  7. ABRAXANE [Concomitant]
     Active Substance: PACLITAXEL
     Dosage: UNK
  8. FEBURIC [Concomitant]
     Active Substance: FEBUXOSTAT
     Dosage: UNK
  9. SEPAZON [Concomitant]
     Active Substance: CLOXAZOLAM
     Dosage: UNK
  10. MIYA-BM [Concomitant]
     Active Substance: CLOSTRIDIUM BUTYRICUM SPORES STRAIN M-55
     Dosage: UNK
  11. DOGMATYL [Concomitant]
     Active Substance: SULPIRIDE
     Dosage: UNK
  12. URSO [Concomitant]
     Active Substance: URSODIOL
     Dosage: UNK
  13. LIPACREON [Concomitant]
     Active Substance: PANCRELIPASE
     Dosage: UNK
  14. ALLELOCK [Concomitant]
     Active Substance: OLOPATADINE HYDROCHLORIDE
     Dosage: UNK
  15. GASMOTIN [Concomitant]
     Active Substance: MOSAPRIDE CITRATE
     Dosage: UNK
  16. LOPEMIN [Concomitant]
     Active Substance: LOPERAMIDE HYDROCHLORIDE
     Dosage: UNK
  17. TEMODAL [Concomitant]
     Active Substance: TEMOZOLOMIDE
     Dosage: UNK

REACTIONS (2)
  - Grip strength decreased [Unknown]
  - Malaise [Unknown]

NARRATIVE: CASE EVENT DATE: 201808
